FAERS Safety Report 7981662-9 (Version None)
Quarter: 2011Q4

REPORT INFORMATION
  Report Type: 
  Country: None (occurrence: None)
  Receive Date: 20111215
  Receipt Date: 20111205
  Transmission Date: 20120403
  Serious: Yes (Hospitalization)
  Sender: FDA-Public Use
  Company Number: US-BAYER-2011-037157

PATIENT
  Age: 23 Year
  Sex: Female
  Weight: 66 kg

DRUGS (5)
  1. YAZ [Suspect]
     Dosage: UNK
     Dates: start: 20090501, end: 20090601
  2. IBUPROFEN [Concomitant]
     Dosage: UNK
     Dates: start: 20090501
  3. LITHIUM [Concomitant]
     Dosage: 100 MG, TID
     Route: 048
     Dates: start: 20090204
  4. YAZ [Suspect]
     Indication: CONTRACEPTION
     Dosage: UNK
     Dates: start: 20080801, end: 20081101
  5. CLONOPIN [Concomitant]
     Dosage: 1 PILL, TID
     Route: 048
     Dates: start: 20090204

REACTIONS (7)
  - ANXIETY [None]
  - PAIN [None]
  - EMOTIONAL DISTRESS [None]
  - GALLBLADDER DISORDER [None]
  - PSYCHOLOGICAL TRAUMA [None]
  - CHOLECYSTITIS CHRONIC [None]
  - BILIARY DYSKINESIA [None]
